FAERS Safety Report 23477962 (Version 2)
Quarter: 2024Q1

REPORT INFORMATION
  Report Type: Spontaneous
  Country: CN (occurrence: CN)
  Receive Date: 20240204
  Receipt Date: 20240214
  Transmission Date: 20240409
  Serious: Yes (Other)
  Sender: FDA-Public Use
  Company Number: -Clarivate-01001927719-PI004807-C1

PATIENT
  Sex: Female

DRUGS (1)
  1. PACLITAXEL [Suspect]
     Active Substance: PACLITAXEL
     Indication: Breast cancer metastatic
     Dosage: ON DAYS 1 AND 8 OF A 21?DAY CYCLE

REACTIONS (2)
  - Swelling [Unknown]
  - Wound secretion [Unknown]
